FAERS Safety Report 6400473-9 (Version None)
Quarter: 2009Q4

REPORT INFORMATION
  Report Type: 
  Country: None (occurrence: None)
  Receive Date: 20091014
  Receipt Date: 20091001
  Transmission Date: 20100525
  Serious: Yes (Other)
  Sender: FDA-Public Use
  Company Number: US-ELI_LILLY_AND_COMPANY-US200910000531

PATIENT
  Sex: Female

DRUGS (2)
  1. FORTEO [Suspect]
     Indication: OSTEOPOROSIS
     Dosage: 20 UG, DAILY (1/D)
     Dates: start: 20080101
  2. IBUPROFEN [Concomitant]

REACTIONS (8)
  - CONTUSION [None]
  - FALL [None]
  - LIMB DISCOMFORT [None]
  - MUSCULOSKELETAL CHEST PAIN [None]
  - OEDEMA PERIPHERAL [None]
  - PAIN [None]
  - PATELLA FRACTURE [None]
  - TOTAL LUNG CAPACITY DECREASED [None]
